FAERS Safety Report 12177560 (Version 1)
Quarter: 2016Q1

REPORT INFORMATION
  Report Type: Spontaneous
  Country: KR (occurrence: KR)
  Receive Date: 20160314
  Receipt Date: 20160314
  Transmission Date: 20160526
  Serious: Yes (Death)
  Sender: FDA-Public Use
  Company Number: KR-GE HEALTHCARE MEDICAL DIAGNOSTICS-OMPQ-PR-1603L-0281

PATIENT

DRUGS (4)
  1. OMNIPAQUE [Suspect]
     Active Substance: IOHEXOL
     Indication: SCIATICA
     Dosage: DOSE NOT REPORTED
     Route: 008
  2. OMNIPAQUE [Suspect]
     Active Substance: IOHEXOL
     Indication: THERAPEUTIC PROCEDURE
  3. OMNIPAQUE [Suspect]
     Active Substance: IOHEXOL
     Indication: BACK PAIN
     Dosage: DOSE NOT REPORTED
     Route: 050
  4. OMNIPAQUE [Suspect]
     Active Substance: IOHEXOL
     Indication: EPIDURAL INJECTION
     Dosage: DOSE NOT REPORTED
     Route: 008

REACTIONS (1)
  - Anaphylactoid shock [Fatal]
